FAERS Safety Report 7482699-9 (Version None)
Quarter: 2011Q1

REPORT INFORMATION
  Report Type: 
  Country: None (occurrence: None)
  Receive Date: 20110308
  Receipt Date: 20101020
  Transmission Date: 20110831
  Serious: Yes (Other)
  Sender: FDA-Public Use
  Company Number: THYM-1001979

PATIENT
  Age: 37 Year
  Sex: Male

DRUGS (4)
  1. SOLU-MEDROL [Concomitant]
  2. THYMOGLOBULIN [Suspect]
     Indication: PROPHYLAXIS AGAINST TRANSPLANT REJECTION
     Dosage: 150 MG, QD, INTRAVENOUS
     Route: 042
  3. MYCOPHENOLATE MOFETIL [Concomitant]
  4. CEFAZOLIN [Concomitant]

REACTIONS (1)
  - BLOOD POTASSIUM INCREASED [None]
